FAERS Safety Report 17867481 (Version 1)
Quarter: 2020Q2

REPORT INFORMATION
  Report Type: Report from Study
  Country: US (occurrence: US)
  Receive Date: 20200605
  Receipt Date: 20200605
  Transmission Date: 20200714
  Serious: Yes (Other)
  Sender: FDA-Public Use
  Company Number: NVSC2020US155256

PATIENT
  Sex: Female

DRUGS (1)
  1. COSENTYX [Suspect]
     Active Substance: SECUKINUMAB
     Indication: ANKYLOSING SPONDYLITIS
     Dosage: 150 MG, QW (WEEKLY FOR 4 WEEKS, THEN EVERY 4 WEEKS THEREAFTER)
     Route: 058

REACTIONS (4)
  - Pelvic inflammatory disease [Unknown]
  - Inflammation [Unknown]
  - Amyloidosis [Unknown]
  - Joint swelling [Unknown]
